FAERS Safety Report 4746392-5 (Version None)
Quarter: 2005Q3

REPORT INFORMATION
  Report Type: 
  Country: None (occurrence: None)
  Receive Date: 20050816
  Receipt Date: 20050816
  Transmission Date: 20060218
  Serious: Yes (Death)
  Sender: FDA-Public Use
  Company Number: None

PATIENT
  Age: 60 Year
  Sex: Male
  Weight: 85.7298 kg

DRUGS (17)
  1. LINEZOLID 600MG [Suspect]
     Indication: PNEUMONIA STAPHYLOCOCCAL
     Dosage: 600MG EVERY 12 HOURS INTRAVENOUS
     Route: 042
     Dates: start: 20050720, end: 20050729
  2. LINEZOLID 600MG [Suspect]
     Indication: SEPSIS
     Dosage: 600MG EVERY 12 HOURS INTRAVENOUS
     Route: 042
     Dates: start: 20050720, end: 20050729
  3. DEXTROSE [Concomitant]
  4. DOBUTAMINE HCL IN DEXTROSE 5% [Concomitant]
  5. DROTRECOGIN ALFA [Concomitant]
  6. FAMOTIDINE [Concomitant]
  7. GATIFLOXACIN [Concomitant]
  8. HEPARIN [Concomitant]
  9. REGULAR INSULIN [Concomitant]
  10. REGULAR INSULIN [Concomitant]
  11. MIDAZOLAM HCL [Concomitant]
  12. MORPHINE DRIP [Concomitant]
  13. NOREPINEPHRINE [Concomitant]
  14. PHENYLEPHRINE [Concomitant]
  15. PIPERACILLIN/TAZOBACTAM [Concomitant]
  16. VANCOMYCIN [Concomitant]
  17. VASOPRESSIN [Concomitant]

REACTIONS (2)
  - ILEUS [None]
  - THROMBOCYTOPENIA [None]
